FAERS Safety Report 9054683 (Version 1)
Quarter: 2013Q1

REPORT INFORMATION
  Report Type: Spontaneous
  Country: SE (occurrence: SE)
  Receive Date: 20130208
  Receipt Date: 20130208
  Transmission Date: 20140127
  Serious: Yes (Hospitalization)
  Sender: FDA-Public Use
  Company Number: SE-JNJFOC-20130200136

PATIENT
  Age: 68 Year
  Sex: 0

DRUGS (8)
  1. REMICADE [Suspect]
     Indication: RHEUMATOID ARTHRITIS
     Route: 042
     Dates: start: 20080922, end: 20121031
  2. PREDNISOLONE [Concomitant]
     Route: 065
     Dates: start: 20050201, end: 20050503
  3. PREDNISOLONE [Concomitant]
     Route: 065
     Dates: start: 20030602, end: 20041101
  4. ENBREL [Concomitant]
     Route: 065
     Dates: start: 20030602, end: 20040412
  5. ENBREL [Concomitant]
     Route: 065
     Dates: start: 20041101, end: 20080922
  6. METHOTREXATE [Concomitant]
     Route: 065
     Dates: start: 20080708, end: 20080922
  7. NSAIDS [Concomitant]
     Route: 065
     Dates: start: 20070510, end: 20071120
  8. NSAIDS [Concomitant]
     Route: 065
     Dates: start: 20050201, end: 20061109

REACTIONS (1)
  - Skin cancer [Recovered/Resolved]
